FAERS Safety Report 4624616-2 (Version None)
Quarter: 2005Q1

REPORT INFORMATION
  Report Type: 
  Country: None (occurrence: None)
  Receive Date: 20050107
  Receipt Date: 20041201
  Transmission Date: 20050727
  Serious: No
  Sender: FDA-Public Use
  Company Number: 235825K04USA

PATIENT
  Age: 21 Year
  Sex: Female

DRUGS (1)
  1. REBIF [Suspect]
     Indication: MULTIPLE SCLEROSIS
     Dosage: 22 MCG ,NOT REPORTED
     Dates: start: 20040101

REACTIONS (3)
  - ASTHENIA [None]
  - CHEST PAIN [None]
  - DYSPNOEA [None]
